FAERS Safety Report 23262319 (Version 3)
Quarter: 2024Q2

REPORT INFORMATION
  Report Type: Report from Study
  Country: US (occurrence: US)
  Receive Date: 20231205
  Receipt Date: 20240416
  Transmission Date: 20240716
  Serious: Yes (Disabling, Other)
  Sender: FDA-Public Use
  Company Number: US-ABBVIE-5518777

PATIENT
  Age: 58 Year
  Sex: Female

DRUGS (1)
  1. RINVOQ [Suspect]
     Active Substance: UPADACITINIB
     Indication: Rheumatoid arthritis
     Dosage: FORM STRENGTH 15 MILLIGRAMS
     Route: 048
     Dates: start: 20221103, end: 20221111

REACTIONS (15)
  - Disability [Unknown]
  - Thrombosis [Unknown]
  - Hernia [Unknown]
  - Abdominal pain [Unknown]
  - Diverticular perforation [Unknown]
  - Incisional hernia [Unknown]
  - Unevaluable event [Unknown]
  - Stoma closure [Unknown]
  - Gait inability [Recovered/Resolved]
  - Intestinal perforation [Not Recovered/Not Resolved]
  - Sinus headache [Unknown]
  - Malaise [Unknown]
  - Sepsis [Unknown]
  - Constipation [Unknown]
  - Stoma complication [Unknown]

NARRATIVE: CASE EVENT DATE: 20221112
